FAERS Safety Report 6979949-1 (Version None)
Quarter: 2010Q3

REPORT INFORMATION
  Report Type: 
  Country: None (occurrence: None)
  Receive Date: 20100909
  Receipt Date: 20100823
  Transmission Date: 20110219
  Serious: Yes (Hospitalization, Other)
  Sender: FDA-Public Use
  Company Number: 20100416

PATIENT
  Age: 44 Year
  Sex: Female

DRUGS (13)
  1. METHYLENE BLUE INJECTION, USP (0310-10)(METHYLENE BLUE) 10 MG/ML [Suspect]
     Indication: PARATHYROID DISORDER
     Dosage: 560 MG /500 ML  SALINE ,  / 2 H INTRAVENOUS DRIP
     Route: 041
  2. CITALOPRAM HYDROBROMIDE [Suspect]
     Indication: DEPRESSION
     Dosage: 220 MG DAILY
  3. ASPIRIN [Concomitant]
  4. SIMVASTATIN [Concomitant]
  5. ATENOLOL [Concomitant]
  6. ISOSORBIDE MONONITRATE [Concomitant]
  7. BENDROFLUMETHIAZIDE [Concomitant]
  8. MORPHINE [Concomitant]
  9. PROPOFOL [Concomitant]
  10. REMIFENTANIL [Concomitant]
  11. ROCURONIUM BROMIDE [Concomitant]
  12. DEXAMETHASONE [Concomitant]
  13. FELODIPINE [Concomitant]

REACTIONS (2)
  - DRUG INTERACTION [None]
  - SEROTONIN SYNDROME [None]
